FAERS Safety Report 10151494 (Version 3)
Quarter: 2014Q2

REPORT INFORMATION
  Report Type: Report from Study
  Country: AU (occurrence: AU)
  Receive Date: 20140504
  Receipt Date: 20140626
  Transmission Date: 20141212
  Serious: Yes (Hospitalization, Other)
  Sender: FDA-Public Use
  Company Number: AU-US-EMD SERONO, INC.-7285655

PATIENT
  Age: 57 Year
  Sex: Female
  Weight: 52 kg

DRUGS (2)
  1. REBIF [Suspect]
     Indication: MULTIPLE SCLEROSIS
     Route: 058
     Dates: start: 2004
  2. ENDONE [Suspect]
     Indication: PAIN

REACTIONS (12)
  - Gastrointestinal carcinoma [Unknown]
  - Reproductive tract disorder [Unknown]
  - Wound infection [Unknown]
  - Frustration [Not Recovered/Not Resolved]
  - Procedural pain [Unknown]
  - Gait disturbance [Unknown]
  - Tearfulness [Unknown]
  - Constipation [Recovered/Resolved]
  - Depressed mood [Not Recovered/Not Resolved]
  - Pain [Not Recovered/Not Resolved]
  - Injection site pain [Not Recovered/Not Resolved]
  - Drug dose omission [Recovered/Resolved]
